FAERS Safety Report 25344511 (Version 3)
Quarter: 2025Q2

REPORT INFORMATION
  Report Type: Report from Study
  Country: CA (occurrence: CA)
  Receive Date: 20250521
  Receipt Date: 20250609
  Transmission Date: 20250716
  Serious: Yes (Hospitalization, Other)
  Sender: ABBVIE
  Company Number: CA-ABBVIE-6291233

PATIENT
  Age: 69 Year
  Sex: Female

DRUGS (1)
  1. SKYRIZI [Suspect]
     Active Substance: RISANKIZUMAB-RZAA
     Indication: Crohn^s disease
     Route: 058
     Dates: start: 20250220

REACTIONS (4)
  - Intestinal resection [Recovering/Resolving]
  - Post procedural complication [Unknown]
  - Hernia [Unknown]
  - Adhesion [Unknown]

NARRATIVE: CASE EVENT DATE: 20250501
